FAERS Safety Report 5046369-9 (Version None)
Quarter: 2006Q3

REPORT INFORMATION
  Report Type: 
  Country: None (occurrence: None)
  Receive Date: 20060710
  Receipt Date: 20051206
  Transmission Date: 20061208
  Serious: Yes (Hospitalization)
  Sender: FDA-Public Use
  Company Number: US-ROCHE-427646

PATIENT
  Age: 49 Year
  Sex: Male

DRUGS (7)
  1. PEGASYS [Suspect]
     Dosage: ROUTE REPORTED AS INJ.
     Route: 050
     Dates: start: 20051105
  2. COPEGUS [Suspect]
     Route: 048
     Dates: start: 20051105
  3. COPEGUS [Suspect]
     Route: 048
     Dates: start: 20051210
  4. COPEGUS [Suspect]
     Route: 048
  5. PROGRAF [Concomitant]
     Indication: TRANSPLANT
  6. CELLCEPT [Concomitant]
     Indication: TRANSPLANT
  7. VALCYTE [Concomitant]
     Indication: TRANSPLANT

REACTIONS (10)
  - AMMONIA INCREASED [None]
  - ASPARTATE AMINOTRANSFERASE INCREASED [None]
  - BACK PAIN [None]
  - DEPRESSION [None]
  - DIARRHOEA [None]
  - FATIGUE [None]
  - FUNGAL SKIN INFECTION [None]
  - PYREXIA [None]
  - THERAPY NON-RESPONDER [None]
  - WHITE BLOOD CELL COUNT DECREASED [None]
